FAERS Safety Report 4834967-4 (Version None)
Quarter: 2005Q4

REPORT INFORMATION
  Report Type: 
  Country: None (occurrence: None)
  Receive Date: 20051114
  Receipt Date: 20051108
  Transmission Date: 20060501
  Serious: Yes (Death)
  Sender: FDA-Public Use
  Company Number: 2005PV003816

PATIENT
  Age: 68 Year
  Sex: Female
  Weight: 112.0385 kg

DRUGS (16)
  1. BYETTA [Suspect]
     Indication: DIABETES MELLITUS NON-INSULIN-DEPENDENT
     Dosage: 5 MCG;BID;SC
     Route: 058
     Dates: start: 20051024, end: 20051028
  2. LISINOPRIL [Concomitant]
  3. GLUCOPHAGE [Concomitant]
  4. ZOCOR [Concomitant]
  5. PLAVIX [Concomitant]
  6. NEURONTIN [Concomitant]
  7. PEPCID [Concomitant]
  8. ASPIRIN [Concomitant]
  9. NORVASC [Concomitant]
  10. OCUVITE [Concomitant]
  11. CHLORTHALIDONE [Concomitant]
  12. CENTRUM [Concomitant]
  13. MAGNESIUM [Concomitant]
  14. ACTOS [Concomitant]
  15. PAXIL CR [Concomitant]
  16. LYRICA [Concomitant]

REACTIONS (6)
  - ARRHYTHMIA [None]
  - ARTERIOSCLEROSIS [None]
  - DIABETES MELLITUS NON-INSULIN-DEPENDENT [None]
  - LIPIDS ABNORMAL [None]
  - PULSE ABSENT [None]
  - RESPIRATORY ARREST [None]
